FAERS Safety Report 9263549 (Version 1)
Quarter: 2013Q2

REPORT INFORMATION
  Report Type: Spontaneous
  Country: US (occurrence: US)
  Receive Date: 20130430
  Receipt Date: 20130430
  Transmission Date: 20140414
  Serious: Yes (Hospitalization)
  Sender: FDA-Public Use
  Company Number: US-BAYER-2013-052085

PATIENT
  Age: 44 Year
  Sex: Female
  Weight: 149.66 kg

DRUGS (17)
  1. YAZ [Suspect]
  2. GIANVI [Suspect]
  3. NASONEX [Concomitant]
     Dosage: 50 ?G, 2 SPRAYS BID
     Dates: start: 20100402
  4. ALLEGRA-D [Concomitant]
     Dosage: 60-120MG EVERY 12 HOURS
     Dates: start: 20100402
  5. BYETTA [Concomitant]
     Dosage: 5MCG/0.02 ML 2 TIMES DAILY
     Dates: start: 20100402
  6. IBUPROFEN [Concomitant]
     Dosage: 800 MG, UNK
     Dates: start: 20100526
  7. PREDNISONE [Concomitant]
     Dosage: 10-20MG DAILY
     Dates: start: 20100517
  8. METFORMIN HCL [Concomitant]
     Dosage: 500 MG, BID
     Dates: start: 20100517
  9. LOSARTAN POTASSIUM [Concomitant]
     Dosage: 50 MG, BID
     Dates: start: 20100517
  10. AZITHROMYCIN [Concomitant]
     Dosage: 250 MG, UNK
     Dates: start: 20100517
  11. ADVAIR [Concomitant]
     Dosage: 500/50 BID
     Dates: start: 20100611
  12. ALBUTEROL [Concomitant]
     Dosage: UNK UNK, PRN
     Dates: start: 20100611
  13. NEXIUM [Concomitant]
     Dosage: 40 MG, BID
     Dates: start: 20100611
  14. PATANOL [Concomitant]
     Dosage: 1 DROP IN EACH EYE BID
  15. ZYFLO [Concomitant]
     Dosage: 600 MG, EVERY 12 HOURS
     Dates: start: 20100611
  16. PIRBUTEROL [Concomitant]
     Dosage: 2 ?G, BID
     Route: 045
     Dates: start: 20100611
  17. CELEBREX [Concomitant]
     Dosage: 20 MG, BID
     Dates: start: 20100517

REACTIONS (1)
  - Pulmonary embolism [None]
